FAERS Safety Report 12363280 (Version 2)
Quarter: 2020Q1

REPORT INFORMATION
  Report Type: Spontaneous
  Country: US (occurrence: US)
  Receive Date: 20160512
  Receipt Date: 20200110
  Transmission Date: 20200409
  Serious: No
  Sender: FDA-Public Use
  Company Number: US-UCBSA-2015007526

PATIENT
  Sex: Female

DRUGS (1)
  1. CIMZIA [Suspect]
     Active Substance: CERTOLIZUMAB PEGOL
     Indication: CROHN^S DISEASE
     Dosage: (200MG INJECTION) 400 MG, EV 4 WEEKS
     Route: 058
     Dates: start: 20140716

REACTIONS (2)
  - Rash [Unknown]
  - Urticaria [Unknown]
